FAERS Safety Report 6887975-6 (Version None)
Quarter: 2010Q3

REPORT INFORMATION
  Report Type: 
  Country: None (occurrence: None)
  Receive Date: 20100730
  Receipt Date: 20100720
  Transmission Date: 20110219
  Serious: Yes (Hospitalization)
  Sender: FDA-Public Use
  Company Number: A0867104A

PATIENT
  Age: 49 Year
  Sex: Male
  Weight: 97.7 kg

DRUGS (6)
  1. AVANDIA [Suspect]
     Dosage: 8MG PER DAY
     Route: 048
     Dates: start: 20010509, end: 20051201
  2. INSULIN [Concomitant]
  3. COREG [Concomitant]
  4. LIPITOR [Concomitant]
  5. COZAAR [Concomitant]
  6. NEURONTIN [Concomitant]

REACTIONS (2)
  - ARTERIOSCLEROSIS CORONARY ARTERY [None]
  - MYOCARDIAL INFARCTION [None]
